FAERS Safety Report 23316990 (Version 1)
Quarter: 2023Q4

REPORT INFORMATION
  Report Type: Spontaneous
  Country: US (occurrence: None)
  Receive Date: 20231219
  Receipt Date: 20231219
  Transmission Date: 20240109
  Serious: No
  Sender: FDA-Public Use
  Company Number: US-ROCHE-3301700

PATIENT
  Age: 52 Year
  Sex: Male

DRUGS (2)
  1. HEMLIBRA [Suspect]
     Active Substance: EMICIZUMAB-KXWH
     Indication: Factor VIII deficiency
     Dosage: INJECT 0.7 ML (105 MG TOTAL ) UNDER SKIN
     Route: 065
     Dates: start: 202201
  2. HEMLIBRA [Suspect]
     Active Substance: EMICIZUMAB-KXWH
     Dosage: STRENGTH 150MG/ML
     Route: 065
     Dates: start: 202201

REACTIONS (2)
  - Haemorrhage [Recovered/Resolved]
  - Tongue haemorrhage [Recovered/Resolved]
